FAERS Safety Report 7257470-3 (Version None)
Quarter: 2011Q1

REPORT INFORMATION
  Report Type: 
  Country: None (occurrence: None)
  Receive Date: 20110129
  Receipt Date: 20100519
  Transmission Date: 20110831
  Serious: No
  Sender: FDA-Public Use
  Company Number: US-ABBOTT-10P-163-0646659-00

PATIENT
  Sex: Female
  Weight: 86.26 kg

DRUGS (4)
  1. HUMIRA [Suspect]
     Indication: PSORIATIC ARTHROPATHY
     Route: 058
     Dates: start: 20100101
  2. INDERAL LA [Concomitant]
     Indication: MITRAL VALVE DISEASE
  3. LEVOTHYROXINE SODIUM [Concomitant]
     Indication: HYPOTHYROIDISM
     Dates: start: 20100401
  4. IMETREX GENERIC CIMATRIPTAN [Concomitant]
     Indication: MIGRAINE

REACTIONS (5)
  - HYPOTHYROIDISM [None]
  - MIGRAINE [None]
  - COUGH [None]
  - UNEVALUABLE EVENT [None]
  - OROPHARYNGEAL PAIN [None]
